FAERS Safety Report 8842068 (Version 5)
Quarter: 2013Q3

REPORT INFORMATION
  Report Type: Spontaneous
  Country: US (occurrence: US)
  Receive Date: 20121016
  Receipt Date: 20130716
  Transmission Date: 20140515
  Serious: Yes (Disabling, Other)
  Sender: FDA-Public Use
  Company Number: US-009507513-1210USA003113

PATIENT
  Sex: Female
  Weight: 66.67 kg

DRUGS (4)
  1. FOSAMAX [Suspect]
     Indication: OSTEOPOROSIS
     Dosage: QD
     Route: 048
     Dates: start: 199702, end: 200201
  2. FOSAMAX [Suspect]
     Dosage: 70 MG QW
     Route: 048
     Dates: start: 200201
  3. ALENDRONATE SODIUM [Suspect]
     Indication: OSTEOPOROSIS
  4. CALCIUM (UNSPECIFIED) (+) VITAMIN D (UNSPECIFIED) [Concomitant]
     Dosage: 1200 MG, QD
     Route: 048
     Dates: start: 1996

REACTIONS (31)
  - Femur fracture [Not Recovered/Not Resolved]
  - Herpes zoster [Unknown]
  - Spinal compression fracture [Unknown]
  - Arthritis [Unknown]
  - Cough [Unknown]
  - Spondylolisthesis [Unknown]
  - Spinal osteoarthritis [Unknown]
  - Lumbar spinal stenosis [Unknown]
  - Vertebral foraminal stenosis [Unknown]
  - Nerve compression [Unknown]
  - Tooth extraction [Unknown]
  - Thoracic vertebral fracture [Unknown]
  - Adverse drug reaction [Unknown]
  - Malaise [Unknown]
  - Adverse drug reaction [Unknown]
  - Thoracic vertebral fracture [Unknown]
  - Lumbar vertebral fracture [Unknown]
  - Kyphosis [Unknown]
  - Spinal compression fracture [Unknown]
  - Spinal compression fracture [Unknown]
  - Spinal fracture [Unknown]
  - Spinal osteoarthritis [Unknown]
  - Hypertension [Unknown]
  - Sneezing [Unknown]
  - Pneumonia [Unknown]
  - Kyphoscoliosis [Unknown]
  - Osteopenia [Unknown]
  - Dyspepsia [Unknown]
  - Drug ineffective [Unknown]
  - Muscle spasms [Unknown]
  - Dizziness [Unknown]
